FAERS Safety Report 7273696-7 (Version None)
Quarter: 2011Q1

REPORT INFORMATION
  Report Type: 
  Country: None (occurrence: None)
  Receive Date: 20110203
  Receipt Date: 20110202
  Transmission Date: 20110831
  Serious: Yes (Hospitalization, Other)
  Sender: FDA-Public Use
  Company Number: CA-ABBOTT-11P-028-0695372-00

PATIENT
  Sex: Female

DRUGS (2)
  1. HUMIRA [Suspect]
     Indication: CROHN'S DISEASE
     Route: 058
     Dates: start: 20090716
  2. HUMIRA [Suspect]
     Route: 058

REACTIONS (4)
  - ABSCESS INTESTINAL [None]
  - CROHN'S DISEASE [None]
  - LARGE INTESTINE PERFORATION [None]
  - DRUG INEFFECTIVE [None]
